FAERS Safety Report 23166060 (Version 1)
Quarter: 2023Q4

REPORT INFORMATION
  Report Type: Other
  Country: PT (occurrence: None)
  Receive Date: 20231109
  Receipt Date: 20231109
  Transmission Date: 20240110
  Serious: Yes (Other)
  Sender: FDA-Public Use
  Company Number: US-ROCHE-3448926

PATIENT
  Age: 62 Year
  Sex: Male

DRUGS (4)
  1. BEVACIZUMAB [Suspect]
     Active Substance: BEVACIZUMAB
     Indication: Retinal vein occlusion
     Route: 050
  2. BEVACIZUMAB [Suspect]
     Active Substance: BEVACIZUMAB
     Indication: Retinal artery occlusion
  3. PREDNISOLONE [Concomitant]
     Active Substance: PREDNISOLONE
     Route: 048
  4. RANIBIZUMAB [Concomitant]
     Active Substance: RANIBIZUMAB
     Route: 050

REACTIONS (4)
  - Endophthalmitis [Recovered/Resolved]
  - Uveitis [Recovered/Resolved]
  - Off label use [Unknown]
  - Off label use [Unknown]
